FAERS Safety Report 4591522-1 (Version None)
Quarter: 2005Q1

REPORT INFORMATION
  Report Type: 
  Country: None (occurrence: None)
  Receive Date: 20050223
  Receipt Date: 20050223
  Transmission Date: 20050727
  Serious: Yes (Hospitalization)
  Sender: FDA-Public Use
  Company Number: None

PATIENT
  Age: 42 Year
  Sex: Female
  Weight: 97.977 kg

DRUGS (11)
  1. XELODA [Suspect]
     Indication: PANCREATIC CARCINOMA
     Dosage: 2000MG   QAM   ORAL
     Route: 048
     Dates: start: 20050131, end: 20050216
  2. XELODA [Suspect]
     Indication: PANCREATIC CARCINOMA
     Dosage: 1500MG  QPM  ORAL
     Route: 048
     Dates: start: 20050131, end: 20050215
  3. DURAGESIC-100 [Concomitant]
  4. OXYCODONE HCL [Concomitant]
  5. COLACE [Concomitant]
  6. SENOKOT [Concomitant]
  7. LACTULOSE [Concomitant]
  8. ZOFRAN [Concomitant]
  9. PHENERGAN [Concomitant]
  10. MEGACE [Concomitant]
  11. REGLAN [Concomitant]

REACTIONS (3)
  - BLOOD BILIRUBIN INCREASED [None]
  - LIVER FUNCTION TEST ABNORMAL [None]
  - MENTAL STATUS CHANGES [None]
